FAERS Safety Report 4384300-X (Version None)
Quarter: 2004Q2

REPORT INFORMATION
  Report Type: 
  Country: None (occurrence: None)
  Receive Date: 20040624
  Receipt Date: 20040615
  Transmission Date: 20050107
  Serious: Yes (Hospitalization)
  Sender: FDA-Public Use
  Company Number: US-ROCHE-371220

PATIENT
  Age: 46 Year
  Sex: Male
  Weight: 94.3 kg

DRUGS (6)
  1. FUZEON [Suspect]
     Indication: HIV INFECTION
     Route: 058
     Dates: start: 20040215
  2. AUGMENTIN [Suspect]
     Route: 065
     Dates: end: 20040515
  3. RESCRIPTOR [Concomitant]
     Indication: HIV INFECTION
     Route: 048
     Dates: start: 20040315
  4. EMTRIVA [Concomitant]
     Indication: HIV INFECTION
     Route: 048
     Dates: start: 20040315
  5. VIREAD [Concomitant]
     Indication: HIV INFECTION
     Route: 048
     Dates: start: 20020615
  6. INVIRASE [Concomitant]
     Indication: HIV INFECTION
     Route: 048
     Dates: start: 20040315

REACTIONS (6)
  - CHILLS [None]
  - DYSPNOEA [None]
  - FATIGUE [None]
  - HAEMOLYTIC ANAEMIA [None]
  - PYREXIA [None]
  - SINUSITIS [None]
